FAERS Safety Report 25110088 (Version 1)
Quarter: 2025Q1

REPORT INFORMATION
  Report Type: Spontaneous
  Country: US (occurrence: US)
  Receive Date: 20250324
  Receipt Date: 20250324
  Transmission Date: 20250409
  Serious: No
  Sender: BIOGEN
  Company Number: US-BIOGEN-2024BI01255287

PATIENT
  Sex: Female

DRUGS (1)
  1. TYSABRI [Suspect]
     Active Substance: NATALIZUMAB
     Indication: Multiple sclerosis
     Route: 050
     Dates: start: 20180125

REACTIONS (6)
  - Therapeutic response shortened [Unknown]
  - Illness [Not Recovered/Not Resolved]
  - Multiple sclerosis relapse [Unknown]
  - Malaise [Unknown]
  - Vein collapse [Unknown]
  - Flushing [Unknown]

NARRATIVE: CASE EVENT DATE: 20240101
